FAERS Safety Report 9448072 (Version 1)
Quarter: 2013Q3

REPORT INFORMATION
  Report Type: Spontaneous
  Country: US (occurrence: None)
  Receive Date: 20130807
  Receipt Date: 20130807
  Transmission Date: 20140515
  Serious: Yes (Disabling, Other)
  Sender: FDA-Public Use
  Company Number: None

PATIENT
  Age: 33 Year
  Sex: Female

DRUGS (1)
  1. TRETINOIN [Suspect]
     Dates: start: 20121101, end: 20130401

REACTIONS (5)
  - Swelling face [None]
  - Skin disorder [None]
  - Skin discolouration [None]
  - Scar [None]
  - Skin hypertrophy [None]
